FAERS Safety Report 21064244 (Version 1)
Quarter: 2022Q3

REPORT INFORMATION
  Report Type: Spontaneous
  Country: ES (occurrence: ES)
  Receive Date: 20220711
  Receipt Date: 20220711
  Transmission Date: 20221027
  Serious: Yes (Hospitalization)
  Sender: FDA-Public Use
  Company Number: None

PATIENT
  Age: 42 Year
  Sex: Male

DRUGS (5)
  1. AMOXICILLIN\CLAVULANIC ACID [Suspect]
     Active Substance: AMOXICILLIN\CLAVULANIC ACID
     Indication: Tooth infection
     Dosage: AMOXICILINA + ACIDO CLAVULANICO, 800 MG / 125 MG, TABLET, UNIT DOSE: 1 DF, FREQUENCY TIME 8 HRS
     Dates: start: 20220616, end: 20220620
  2. DEXKETOPROFEN [Suspect]
     Active Substance: DEXKETOPROFEN
     Indication: Product used for unknown indication
     Dosage: DEXKETOPROFENO (7312A), UNIT DOSE: 25 MG, FREQUENCY TIME : 8 HRS
     Dates: start: 20220313, end: 20220319
  3. DEXKETOPROFEN [Suspect]
     Active Substance: DEXKETOPROFEN
     Dosage: DEXKETOPROFENO (7312A), UNIT DOSE: 25 MG, FREQUENCY TIME : 8 HRS
     Dates: start: 20220513, end: 20220519
  4. DEXKETOPROFEN [Suspect]
     Active Substance: DEXKETOPROFEN
     Dosage: DEXKETOPROFENO (7312A), UNIT DOSE: 25 MG, FREQUENCY TIME : 8 HRS
     Dates: start: 20220605, end: 20220609
  5. DEXKETOPROFEN [Suspect]
     Active Substance: DEXKETOPROFEN
     Dosage: DEXKETOPROFENO (7312A),
     Dates: start: 20220124, end: 20220202

REACTIONS (1)
  - Eosinophilic pneumonia acute [Recovering/Resolving]

NARRATIVE: CASE EVENT DATE: 20220620
